FAERS Safety Report 10550386 (Version 2)
Quarter: 2014Q4

REPORT INFORMATION
  Report Type: Spontaneous
  Country: US (occurrence: US)
  Receive Date: 20141029
  Receipt Date: 20141029
  Transmission Date: 20150529
  Serious: No
  Sender: FDA-Public Use
  Company Number: US-TEVA-429120USA

PATIENT
  Sex: Female

DRUGS (1)
  1. PROVIGIL [Suspect]
     Active Substance: MODAFINIL
     Route: 048

REACTIONS (7)
  - Stomatitis [Not Recovered/Not Resolved]
  - Depression [Unknown]
  - Salivary hypersecretion [Unknown]
  - Anxiety [Not Recovered/Not Resolved]
  - Mucosal inflammation [Unknown]
  - Dry mouth [Unknown]
  - Local swelling [Unknown]

NARRATIVE: CASE EVENT DATE: 2013
